FAERS Safety Report 7497140-X (Version None)
Quarter: 2011Q2

REPORT INFORMATION
  Report Type: 
  Country: None (occurrence: None)
  Receive Date: 20110516
  Receipt Date: 20110503
  Transmission Date: 20111010
  Serious: Yes (Hospitalization, Other)
  Sender: FDA-Public Use
  Company Number: 2011MA004912

PATIENT
  Age: 37 Year
  Sex: Male

DRUGS (1)
  1. FEVERALL [Suspect]
     Indication: OVERDOSE

REACTIONS (17)
  - POLYURIA [None]
  - TYPE 1 DIABETES MELLITUS [None]
  - KETONURIA [None]
  - DEHYDRATION [None]
  - HYPERGLYCAEMIA [None]
  - NYSTAGMUS [None]
  - BLOOD AMYLASE INCREASED [None]
  - SHOCK [None]
  - KUSSMAUL RESPIRATION [None]
  - OVERDOSE [None]
  - HAEMODYNAMIC INSTABILITY [None]
  - LOSS OF CONSCIOUSNESS [None]
  - WHITE BLOOD CELL COUNT INCREASED [None]
  - DRUG SCREEN POSITIVE [None]
  - DIABETIC KETOACIDOSIS [None]
  - METABOLIC ACIDOSIS [None]
  - TACHYCARDIA [None]
